FAERS Safety Report 5859651-X (Version None)
Quarter: 2008Q3

REPORT INFORMATION
  Report Type: 
  Country: None (occurrence: None)
  Receive Date: 20080818
  Receipt Date: 20080714
  Transmission Date: 20090109
  Serious: No
  Sender: FDA-Public Use
  Company Number: WAES 0807USA02487

PATIENT
  Age: 83 Year
  Sex: Female

DRUGS (5)
  1. JANUVIA [Suspect]
     Indication: DIABETES MELLITUS
     Dosage: 100 MG DAILY PO
     Route: 048
     Dates: start: 20070901, end: 20071001
  2. JANUVIA [Suspect]
     Indication: DIABETES MELLITUS
     Dosage: 100 MG DAILY PO
     Route: 048
     Dates: start: 20071001, end: 20080601
  3. LIPITOR [Concomitant]
  4. TIAZEC [Concomitant]
  5. ZESTRIL [Concomitant]

REACTIONS (3)
  - ABDOMINAL PAIN [None]
  - ALOPECIA [None]
  - GASTROINTESTINAL DISORDER [None]
